FAERS Safety Report 6771147-X (Version None)
Quarter: 2010Q2

REPORT INFORMATION
  Report Type: 
  Country: None (occurrence: None)
  Receive Date: 20100614
  Receipt Date: 20100614
  Transmission Date: 20101027
  Serious: Yes (Disabling)
  Sender: FDA-Public Use
  Company Number: None

PATIENT
  Sex: Female
  Weight: 65.7716 kg

DRUGS (2)
  1. CIPROFLOXODIN BAYER/MERCK [Suspect]
     Indication: URINARY TRACT INFECTION
     Dosage: 500MG 2 X A DAY
     Dates: start: 20100529
  2. CIPROFLOXODIN BAYER/MERCK [Suspect]
     Indication: URINARY TRACT INFECTION
     Dosage: 500MG 2 X A DAY
     Dates: start: 20100530

REACTIONS (3)
  - BURNING SENSATION [None]
  - PAIN [None]
  - SHOCK [None]
